FAERS Safety Report 10117008 (Version 1)
Quarter: 2014Q2

REPORT INFORMATION
  Report Type: Spontaneous
  Country: BE (occurrence: BE)
  Receive Date: 20140425
  Receipt Date: 20140425
  Transmission Date: 20141212
  Serious: Yes (Disabling)
  Sender: FDA-Public Use
  Company Number: BE-TEVA-476715ISR

PATIENT
  Age: 80 Year
  Sex: Female

DRUGS (1)
  1. KINESPIR PATCH [Suspect]

REACTIONS (5)
  - Burns third degree [Not Recovered/Not Resolved]
  - Wound secretion [Not Recovered/Not Resolved]
  - Wound infection [Not Recovered/Not Resolved]
  - Activities of daily living impaired [Unknown]
  - Wound complication [Not Recovered/Not Resolved]
